FAERS Safety Report 11741545 (Version 1)
Quarter: 2015Q4

REPORT INFORMATION
  Report Type: Spontaneous
  Country: GB (occurrence: None)
  Receive Date: 20151113
  Receipt Date: 20151113
  Transmission Date: 20160304
  Serious: Yes (Other)
  Sender: FDA-Public Use
  Company Number: None

PATIENT
  Age: 53 Year
  Sex: Male
  Weight: 58 kg

DRUGS (5)
  1. SIMVASTATIN. [Concomitant]
     Active Substance: SIMVASTATIN
  2. LORAZEPAM. [Concomitant]
     Active Substance: LORAZEPAM
  3. APIXABAN [Suspect]
     Active Substance: APIXABAN
     Indication: PULMONARY EMBOLISM
     Dosage: TREATMENT FOR PEOPLE P.E^S
     Route: 048
     Dates: start: 20150727, end: 20151110
  4. PARACETAMOL [Concomitant]
     Active Substance: ACETAMINOPHEN
  5. LANZOPRASOLE [Concomitant]

REACTIONS (7)
  - Heart rate increased [None]
  - Dyspnoea [None]
  - Bone pain [None]
  - Dizziness [None]
  - Asthenia [None]
  - Malaise [None]
  - Abdominal pain [None]

NARRATIVE: CASE EVENT DATE: 20151102
